FAERS Safety Report 22659191 (Version 1)
Quarter: 2023Q2

REPORT INFORMATION
  Report Type: Spontaneous
  Country: US (occurrence: None)
  Receive Date: 20230629
  Receipt Date: 20230629
  Transmission Date: 20230721
  Serious: No
  Sender: FDA-Public Use
  Company Number: None

PATIENT
  Sex: 0

DRUGS (3)
  1. TOPIRAMATE [Suspect]
     Active Substance: TOPIRAMATE
     Indication: Migraine
     Dosage: OTHER QUANTITY : 1 TABLET(S);?FREQUENCY : TWICE A DAY;?
     Route: 048
     Dates: start: 20120611, end: 20120621
  2. TOPIRAMATE [Suspect]
     Active Substance: TOPIRAMATE
     Indication: Nervous system disorder
  3. TOPIRAMATE [Suspect]
     Active Substance: TOPIRAMATE
     Indication: Pain

REACTIONS (4)
  - Migraine [None]
  - Dizziness [None]
  - Disorientation [None]
  - Paradoxical drug reaction [None]

NARRATIVE: CASE EVENT DATE: 20120620
